FAERS Safety Report 7542715-2 (Version None)
Quarter: 2011Q2

REPORT INFORMATION
  Report Type: 
  Country: None (occurrence: None)
  Receive Date: 20110613
  Receipt Date: 20110524
  Transmission Date: 20111010
  Serious: Yes (Hospitalization)
  Sender: FDA-Public Use
  Company Number: A0803285A

PATIENT
  Age: 59 Year
  Sex: Male
  Weight: 129 kg

DRUGS (2)
  1. AVANDIA [Suspect]
     Route: 048
  2. AVANDAMET [Suspect]
     Route: 048
     Dates: start: 20000101, end: 20070901

REACTIONS (3)
  - CORONARY ARTERY DISEASE [None]
  - MYOCARDIAL INFARCTION [None]
  - CARDIOVASCULAR DISORDER [None]
